FAERS Safety Report 9419632 (Version 2)
Quarter: 2013Q3

REPORT INFORMATION
  Report Type: Report from Study
  Country: DE (occurrence: DE)
  Receive Date: 20130725
  Receipt Date: 20130801
  Transmission Date: 20140515
  Serious: Yes (Death, Hospitalization)
  Sender: FDA-Public Use
  Company Number: DE-SANOFI-AVENTIS-2013SA073024

PATIENT
  Age: 38 Year
  Sex: Female

DRUGS (1)
  1. DOCETAXEL [Suspect]
     Indication: BREAST CANCER
     Route: 041
     Dates: start: 20130712, end: 20130712

REACTIONS (3)
  - Sepsis [Fatal]
  - Necrotising fasciitis [Not Recovered/Not Resolved]
  - Neutropenia [Not Recovered/Not Resolved]
